FAERS Safety Report 6390472-8 (Version None)
Quarter: 2009Q4

REPORT INFORMATION
  Report Type: 
  Country: None (occurrence: None)
  Receive Date: 20091006
  Receipt Date: 20090930
  Transmission Date: 20100525
  Serious: Yes (Death, Hospitalization, Other)
  Sender: FDA-Public Use
  Company Number: FR-GILEAD-2009-0024552

PATIENT
  Sex: Male
  Weight: 50 kg

DRUGS (4)
  1. TRUVADA [Suspect]
     Indication: HIV INFECTION
     Dates: start: 20090501
  2. KALETRA [Concomitant]
     Indication: HIV INFECTION
  3. TIAPRIDAL [Concomitant]
     Indication: AGITATION
  4. PROGRAF [Concomitant]
     Indication: TRANSPLANT

REACTIONS (3)
  - ANURIA [None]
  - LACTIC ACIDOSIS [None]
  - RENAL FAILURE [None]
